FAERS Safety Report 18480174 (Version 1)
Quarter: 2020Q4

REPORT INFORMATION
  Report Type: Spontaneous
  Country: DE (occurrence: DE)
  Receive Date: 20201109
  Receipt Date: 20201109
  Transmission Date: 20210114
  Serious: Yes (Death, Other)
  Sender: FDA-Public Use
  Company Number: DE-MICRO LABS LIMITED-ML2020-03310

PATIENT
  Age: 29 Year
  Sex: Female

DRUGS (6)
  1. MXE (METHOXETAMINE) [Suspect]
     Active Substance: METHOXETAMINE
  2. 3-MEO-PCE (3-METHOXYETICYCLIDINE) [Suspect]
     Active Substance: N-ETHYL-1-(3-METHOXYPHENYL)CYCLOHEXANAMINE
  3. TRAMADOL. [Suspect]
     Active Substance: TRAMADOL
  4. IBUPROFEN. [Suspect]
     Active Substance: IBUPROFEN
  5. CAFFEINE CITRATE. [Suspect]
     Active Substance: CAFFEINE CITRATE
  6. 2-DPMP (DESOXYPIPRADROL) [Suspect]
     Active Substance: DESOXYPIPRADROL

REACTIONS (2)
  - Drug abuse [Unknown]
  - Toxicity to various agents [Fatal]
